FAERS Safety Report 22377188 (Version 2)
Quarter: 2023Q2

REPORT INFORMATION
  Report Type: Spontaneous
  Country: CN (occurrence: CN)
  Receive Date: 20230529
  Receipt Date: 20230616
  Transmission Date: 20230722
  Serious: Yes (Hospitalization)
  Sender: FDA-Public Use
  Company Number: CN-NOVOPROD-1067056

PATIENT
  Age: 67 Year
  Sex: Male
  Weight: 68 kg

DRUGS (2)
  1. NOVOLIN R [Suspect]
     Active Substance: INSULIN HUMAN
     Indication: Type 1 diabetes mellitus
     Dosage: 35 IU, QD(22 U IN THE MORNING AND 13 U IN THE EVENING)
     Dates: start: 20150518
  2. GLUCOBAY [Concomitant]
     Active Substance: ACARBOSE
     Indication: Type 1 diabetes mellitus
     Dosage: 2 DF, QD(2 TABLETS AT NOON EVERY DAY FOR OVER TEN YEARS)

REACTIONS (1)
  - Hypoglycaemic unconsciousness [Recovering/Resolving]

NARRATIVE: CASE EVENT DATE: 20220701
